FAERS Safety Report 10102083 (Version 1)
Quarter: 2014Q2

REPORT INFORMATION
  Report Type: Spontaneous
  Country: US (occurrence: US)
  Receive Date: 20140424
  Receipt Date: 20140424
  Transmission Date: 20141212
  Serious: Yes (Death)
  Sender: FDA-Public Use
  Company Number: US-ROCHE-1389360

PATIENT
  Age: 86 Year
  Sex: Female

DRUGS (1)
  1. RITUXAN [Suspect]
     Indication: NON-HODGKIN^S LYMPHOMA
     Dosage: FIRST INFUSION
     Route: 042
     Dates: start: 201404

REACTIONS (1)
  - Death [Fatal]
